FAERS Safety Report 19179823 (Version 1)
Quarter: 2021Q2

REPORT INFORMATION
  Report Type: Spontaneous
  Country: US (occurrence: US)
  Receive Date: 20210424
  Receipt Date: 20210424
  Transmission Date: 20210717
  Serious: Yes (Other)
  Sender: FDA-Public Use
  Company Number: None

PATIENT
  Age: 74 Year
  Sex: Female
  Weight: 99 kg

DRUGS (9)
  1. LOVASTATIN. [Concomitant]
     Active Substance: LOVASTATIN
  2. LYRICA [Concomitant]
     Active Substance: PREGABALIN
  3. REG VITAMIN [Concomitant]
  4. MELOXICAM. [Concomitant]
     Active Substance: MELOXICAM
  5. LEVOTHYROXINE. [Concomitant]
     Active Substance: LEVOTHYROXINE
  6. TYLENOL [Concomitant]
     Active Substance: ACETAMINOPHEN
  7. ATENOLOL. [Concomitant]
     Active Substance: ATENOLOL
  8. CITRACAL [Concomitant]
     Active Substance: CALCIUM CITRATE
  9. VARITHENA [Suspect]
     Active Substance: POLIDOCANOL
     Indication: VEIN DISORDER
     Route: 042
     Dates: start: 20210122

REACTIONS (3)
  - Stasis dermatitis [None]
  - Erythema [None]
  - Pain [None]

NARRATIVE: CASE EVENT DATE: 20210124
